FAERS Safety Report 21282803 (Version 1)
Quarter: 2022Q3

REPORT INFORMATION
  Report Type: Spontaneous
  Country: US (occurrence: US)
  Receive Date: 20220901
  Receipt Date: 20220901
  Transmission Date: 20221026
  Serious: No
  Sender: FDA-Public Use
  Company Number: US-GILEAD-2022-0595714

PATIENT
  Sex: Female

DRUGS (5)
  1. EPCLUSA [Suspect]
     Active Substance: SOFOSBUVIR\VELPATASVIR
     Indication: Chronic hepatitis C
     Dosage: 1 DOSAGE FORM, QD
     Route: 048
  2. SUBOXONE [Concomitant]
     Active Substance: BUPRENORPHINE HYDROCHLORIDE\NALOXONE HYDROCHLORIDE
  3. SETLAKIN [Concomitant]
     Active Substance: ETHINYL ESTRADIOL\LEVONORGESTREL
  4. AIMOVIG [Concomitant]
     Active Substance: ERENUMAB-AOOE
  5. SUMATRIPTAN SUCCINATE [Concomitant]
     Active Substance: SUMATRIPTAN SUCCINATE

REACTIONS (2)
  - Fatigue [Recovered/Resolved]
  - Migraine [Recovered/Resolved]
